FAERS Safety Report 9189705 (Version 2)
Quarter: 2014Q2

REPORT INFORMATION
  Report Type: Spontaneous
  Country: US (occurrence: US)
  Receive Date: 20130326
  Receipt Date: 20140414
  Transmission Date: 20141212
  Serious: Yes (Hospitalization)
  Sender: FDA-Public Use
  Company Number: US-BAYER-2013-037259

PATIENT
  Age: 40 Year
  Sex: Female

DRUGS (5)
  1. YAZ [Suspect]
     Indication: ACNE
  2. YASMIN [Suspect]
     Indication: ACNE
  3. OCELLA [Suspect]
     Indication: ACNE
  4. METFORMIN [Concomitant]
     Dosage: 1000MG [TWICE A DAY]
  5. ZARAH [Concomitant]
     Dosage: UNK
     Dates: start: 20110110, end: 20110228

REACTIONS (5)
  - Injury [None]
  - Pain [None]
  - Pain [None]
  - Pulmonary embolism [None]
  - Deep vein thrombosis [None]
